FAERS Safety Report 6398229-9 (Version None)
Quarter: 2009Q4

REPORT INFORMATION
  Report Type: 
  Country: None (occurrence: None)
  Receive Date: 20091013
  Receipt Date: 20091008
  Transmission Date: 20100525
  Serious: Yes (Death, Hospitalization)
  Sender: FDA-Public Use
  Company Number: PHHO2009US10571

PATIENT
  Sex: Female

DRUGS (4)
  1. RAD 666 RAD+TAB+CMAS [Suspect]
     Indication: BREAST CANCER
     Dosage: 10 MG, QD
     Route: 048
     Dates: start: 20090811
  2. DECADRON [Concomitant]
  3. ATENOLOL [Concomitant]
  4. MORPHIN HCL [Concomitant]

REACTIONS (6)
  - ATRIAL FIBRILLATION [None]
  - FALL [None]
  - FEBRILE NEUTROPENIA [None]
  - MUSCULAR WEAKNESS [None]
  - SEPSIS [None]
  - SINUS TACHYCARDIA [None]
